FAERS Safety Report 9461430 (Version 1)
Quarter: 2013Q3

REPORT INFORMATION
  Report Type: Spontaneous
  Country: US (occurrence: US)
  Receive Date: 20130816
  Receipt Date: 20130816
  Transmission Date: 20140515
  Serious: No
  Sender: FDA-Public Use
  Company Number: US-PFIZER INC-2013237430

PATIENT
  Age: 43 Year
  Sex: Female
  Weight: 88.44 kg

DRUGS (3)
  1. PRISTIQ [Suspect]
     Indication: DEPRESSION
     Dosage: 50 MG, 1X/DAY
     Route: 048
     Dates: start: 20130627, end: 201308
  2. TRAZODONE [Concomitant]
     Dosage: 100 MG, 1X/DAY
  3. BUSPAR [Concomitant]
     Dosage: 10 MG, 2X/DAY

REACTIONS (8)
  - Drug withdrawal syndrome [Not Recovered/Not Resolved]
  - Anxiety [Not Recovered/Not Resolved]
  - Heart rate abnormal [Not Recovered/Not Resolved]
  - Irritability [Not Recovered/Not Resolved]
  - Migraine [Not Recovered/Not Resolved]
  - Sleep disorder [Not Recovered/Not Resolved]
  - Nightmare [Not Recovered/Not Resolved]
  - Hyperhidrosis [Not Recovered/Not Resolved]
